FAERS Safety Report 11906747 (Version 1)
Quarter: 2016Q1

REPORT INFORMATION
  Report Type: Other
  Country: US (occurrence: US)
  Receive Date: 20160111
  Receipt Date: 20160111
  Transmission Date: 20160526
  Serious: No
  Sender: FDA-Public Use
  Company Number: US-MYLANLABS-2015M1032494

PATIENT
  Sex: Female
  Weight: 58.96 kg

DRUGS (2)
  1. SYNTHROID [Concomitant]
     Active Substance: LEVOTHYROXINE SODIUM
     Dosage: UNK
  2. ESTRADIOL TRANSDERMAL SYSTEM [Suspect]
     Active Substance: ESTRADIOL
     Indication: MENOPAUSE
     Dosage: 0.025 MG, QD, TWICE WEEKLY
     Route: 062
     Dates: start: 201507, end: 201508

REACTIONS (2)
  - Headache [Recovered/Resolved]
  - Neck pain [Recovering/Resolving]
